FAERS Safety Report 11620422 (Version 1)
Quarter: 2015Q4

REPORT INFORMATION
  Report Type: Spontaneous
  Country: GB (occurrence: GB)
  Receive Date: 20151012
  Receipt Date: 20151012
  Transmission Date: 20160304
  Serious: Yes (Other)
  Sender: FDA-Public Use
  Company Number: GB-PFIZER INC-2015331852

PATIENT
  Age: 37 Year
  Sex: Female
  Weight: 69 kg

DRUGS (20)
  1. HYDROXOCOBALAMIN [Concomitant]
     Active Substance: HYDROXOCOBALAMIN
     Dosage: UNK IMMEDIATELY
     Dates: start: 20150630, end: 20150701
  2. OXYNORM [Concomitant]
     Active Substance: OXYCODONE HYDROCHLORIDE
     Dosage: 1 DF, UNK
     Dates: start: 20141103
  3. CYCLIZINE [Concomitant]
     Active Substance: CYCLIZINE
     Dosage: 50 MG, 3X/DAY
     Dates: start: 20150923
  4. LORAZEPAM. [Concomitant]
     Active Substance: LORAZEPAM
     Indication: ANXIETY
     Dosage: 0.5 DF, TAKE HALF A TABLET (0.5MGS)
     Dates: start: 20150807, end: 20150904
  5. MORPHINE SULFATE. [Concomitant]
     Active Substance: MORPHINE SULFATE
     Dosage: 5 ML, UNK
     Dates: start: 20150824, end: 20150907
  6. CEFALEXIN [Concomitant]
     Active Substance: CEPHALEXIN
     Dosage: 1 DF, 3X/DAY
     Dates: start: 20150731, end: 20150807
  7. TRIMETHOPRIM. [Concomitant]
     Active Substance: TRIMETHOPRIM
     Dosage: 1 DF, 2X/DAY
     Dates: start: 20150716
  8. PREGABALIN. [Suspect]
     Active Substance: PREGABALIN
     Dosage: UNK
     Dates: start: 20150206
  9. FUROSEMIDE. [Concomitant]
     Active Substance: FUROSEMIDE
     Dosage: UNK TAKE ONE EACH MORNING FOR 3 DAYS THEN INCREASE
     Dates: start: 20150626
  10. MATRIFEN [Concomitant]
     Active Substance: FENTANYL
     Dosage: 1 DF, EVERY 72 HOUR
     Dates: start: 20141201
  11. CHLORHEXIDINE GLUCONATE. [Concomitant]
     Active Substance: CHLORHEXIDINE GLUCONATE
     Dosage: UNK USE AS DIRECTED
     Dates: start: 20150731, end: 20150918
  12. ZEROBASE [Concomitant]
     Dosage: UNK APPLY TO THE AFFECTED AREA(S) AS OFTEN AS REQUIRED
     Route: 061
     Dates: start: 20150629, end: 20150727
  13. METOCLOPRAMIDE. [Suspect]
     Active Substance: METOCLOPRAMIDE
     Indication: NAUSEA
     Dosage: 10 MG, 3X/DAY
     Dates: start: 20150915
  14. AMITRIPTYLINE HYDROCHLORIDE. [Concomitant]
     Active Substance: AMITRIPTYLINE HYDROCHLORIDE
     Dosage: UNK 1-2 AT NIGHT
     Dates: start: 20141127, end: 20150731
  15. FOLIC ACID. [Concomitant]
     Active Substance: FOLIC ACID
     Dosage: 1 DF, 1X/DAY
     Dates: start: 20150527
  16. PARACETAMOL [Concomitant]
     Active Substance: ACETAMINOPHEN
     Dosage: 2 DF, 4X/DAY
     Dates: start: 20141027
  17. FLUOXETINE [Concomitant]
     Active Substance: FLUOXETINE HYDROCHLORIDE
     Dosage: 1 DF, 1X/DAY
     Dates: start: 20110926
  18. LACTULOSE. [Concomitant]
     Active Substance: LACTULOSE
     Dosage: 10 ML, 3 TIMES A DAY
     Dates: start: 20141008
  19. ONDANSETRON [Concomitant]
     Active Substance: ONDANSETRON
     Dosage: UNK TAKE ONE OR TWO UPTO TWICE DAILY
     Dates: start: 20141125
  20. PIVMECILLINAM [Concomitant]
     Active Substance: PENICILLIN
     Dosage: UNK 2 STRAIGHT AWAY THEN ONE THREE TIMES DAILY
     Dates: start: 20150910, end: 20150913

REACTIONS (2)
  - Confusional state [Recovered/Resolved with Sequelae]
  - Akathisia [Recovered/Resolved with Sequelae]

NARRATIVE: CASE EVENT DATE: 20150915
